FAERS Safety Report 21988012 (Version 3)
Quarter: 2023Q1

REPORT INFORMATION
  Report Type: Report from Study
  Country: CA (occurrence: CA)
  Receive Date: 20230214
  Receipt Date: 20230323
  Transmission Date: 20230417
  Serious: Yes (Other)
  Sender: FDA-Public Use
  Company Number: CA-TAKEDA-2023TUS012944

PATIENT
  Age: 43 Year
  Sex: Female

DRUGS (2)
  1. VEDOLIZUMAB [Suspect]
     Active Substance: VEDOLIZUMAB
     Indication: Colitis ulcerative
     Dosage: 300 MILLIGRAM
     Route: 042
     Dates: start: 20230202
  2. VEDOLIZUMAB [Suspect]
     Active Substance: VEDOLIZUMAB
     Dosage: 300 MILLIGRAM
     Route: 042

REACTIONS (5)
  - Colitis ulcerative [Recovering/Resolving]
  - Drug ineffective [Recovering/Resolving]
  - Feeling abnormal [Not Recovered/Not Resolved]
  - Abdominal pain [Unknown]
  - Abdominal distension [Unknown]
